FAERS Safety Report 6190073-0 (Version None)
Quarter: 2009Q2

REPORT INFORMATION
  Report Type: 
  Country: None (occurrence: None)
  Receive Date: 20090513
  Receipt Date: 20090513
  Transmission Date: 20091009
  Serious: Yes (Other)
  Sender: FDA-Public Use
  Company Number: None

PATIENT
  Sex: Female
  Weight: 95.2554 kg

DRUGS (4)
  1. LAMOTRIGINE [Suspect]
     Indication: MENTAL DISORDER
     Dosage: 25 MG 1/DAY FOR 2 WEEK; 50 MG 2/DAY FOR 2 WEEK
     Dates: start: 20090410, end: 20090429
  2. METFORMIN HCL [Concomitant]
  3. PROPRANOLOL [Concomitant]
  4. STIMVISTATIN [Concomitant]

REACTIONS (4)
  - DRY SKIN [None]
  - EAR INFECTION [None]
  - PHARYNGITIS STREPTOCOCCAL [None]
  - PRURITUS [None]
